FAERS Safety Report 19819402 (Version 1)
Quarter: 2021Q3

REPORT INFORMATION
  Report Type: Spontaneous
  Country: CN (occurrence: CN)
  Receive Date: 20210913
  Receipt Date: 20210913
  Transmission Date: 20211014
  Serious: Yes (Hospitalization)
  Sender: FDA-Public Use
  Company Number: CN-BAXTER-2021BAX028076

PATIENT
  Age: 4 Year
  Sex: Male
  Weight: 17 kg

DRUGS (14)
  1. 0.9% SODIUM CHLORIDE INJECTION [Suspect]
     Active Substance: SODIUM CHLORIDE
     Dosage: SOLVENT FOR TOPOTECAN HYDROCHLORIDE
     Route: 041
     Dates: start: 20210811, end: 20210815
  2. TOPOTECAN HYDROCHLORIDE. [Suspect]
     Active Substance: TOPOTECAN HYDROCHLORIDE
     Dosage: DOSE REINTRODUCED.
     Route: 041
  3. 0.9% SODIUM CHLORIDE INJECTION [Suspect]
     Active Substance: SODIUM CHLORIDE
     Dosage: DOSE REINTRODUCED (SOLVENT FOR CYCLOPHOSPHAMIDE)
     Route: 041
  4. MESNA. [Suspect]
     Active Substance: MESNA
     Dosage: DOSE REINTRODUCED.
     Route: 042
  5. ENDOXAN [Suspect]
     Active Substance: CYCLOPHOSPHAMIDE
     Indication: NEUROBLASTOMA RECURRENT
     Dosage: CYCLOPHOSPHAMIDE 170 MG + 0.9% NS 41 ML IVGTT
     Route: 041
     Dates: start: 20210811, end: 20210815
  6. ENDOXAN [Suspect]
     Active Substance: CYCLOPHOSPHAMIDE
     Dosage: DOSE REINTRODUCED
     Route: 041
  7. 0.9% SODIUM CHLORIDE INJECTION [Suspect]
     Active Substance: SODIUM CHLORIDE
     Dosage: DOSE REINTRODUCED (SOLVENT FOR ONDANSETRON HYDROCHLORIDE)
     Route: 042
  8. MESNA. [Suspect]
     Active Substance: MESNA
     Indication: CYSTITIS HAEMORRHAGIC
     Dosage: BEFORE AND AFTER CYCLOPHOSPHAMIDE USE, MESNA INJECTION 100 MG TWICE A DAY
     Route: 042
     Dates: start: 20210811, end: 20210815
  9. 0.9% SODIUM CHLORIDE INJECTION [Suspect]
     Active Substance: SODIUM CHLORIDE
     Dosage: SOLVENT FOR CYCLOPHOSPHAMIDE
     Route: 041
     Dates: start: 20210811, end: 20210815
  10. ONDANSETRON HYDROCHLORIDE. [Suspect]
     Active Substance: ONDANSETRON HYDROCHLORIDE
     Dosage: DOSE REINTRODUCED.
     Route: 042
  11. 0.9% SODIUM CHLORIDE INJECTION [Suspect]
     Active Substance: SODIUM CHLORIDE
     Indication: MEDICATION DILUTION
     Dosage: SOLVENT FOR ONDANSETRON HYDROCHLORIDE
     Route: 042
     Dates: start: 20210811, end: 20210815
  12. 0.9% SODIUM CHLORIDE INJECTION [Suspect]
     Active Substance: SODIUM CHLORIDE
     Dosage: DOSE REINTRODUCED (SOLVENT FOR TOPOTECAN HYDROCHLORIDE)
     Route: 041
  13. TOPOTECAN HYDROCHLORIDE. [Suspect]
     Active Substance: TOPOTECAN HYDROCHLORIDE
     Indication: NEUROBLASTOMA RECURRENT
     Dosage: TOPOTECAN 0.5 MG + 0.9% NS 20 ML IVGTT
     Route: 041
     Dates: start: 20210811, end: 20210815
  14. ONDANSETRON HYDROCHLORIDE. [Suspect]
     Active Substance: ONDANSETRON HYDROCHLORIDE
     Indication: VOMITING
     Dosage: ONDANSETRON INJECTION 3.4 MG + 0.9% NS 25 ML IV
     Route: 042
     Dates: start: 20210811, end: 20210815

REACTIONS (2)
  - Pyrexia [Recovering/Resolving]
  - Pancytopenia [Recovering/Resolving]

NARRATIVE: CASE EVENT DATE: 20210821
